FAERS Safety Report 26076112 (Version 1)
Quarter: 2025Q4

REPORT INFORMATION
  Report Type: Spontaneous
  Country: US (occurrence: US)
  Receive Date: 20251121
  Receipt Date: 20251121
  Transmission Date: 20260119
  Serious: No
  Sender: CATALYST PHARMA
  Company Number: US-CATALYST PHARMACEUTICALS-US-CATA-25-01622

PATIENT
  Age: 13 Year
  Sex: Male
  Weight: 39.392 kg

DRUGS (7)
  1. AGAMREE [Suspect]
     Active Substance: VAMOROLONE
     Indication: Duchenne muscular dystrophy
     Dosage: 5.2 ML, DAILY
     Route: 048
     Dates: start: 20250904
  2. LISINOPRIL [Concomitant]
     Active Substance: LISINOPRIL
     Indication: Cardiovascular event prophylaxis
     Dosage: 10MG DAILY
     Route: 065
  3. VITAMIN D3 [Concomitant]
     Active Substance: CHOLECALCIFEROL
     Indication: Bone disorder
     Dosage: 2000 IUS DAILY
     Route: 065
  4. VITAMIN D3 [Concomitant]
     Active Substance: CHOLECALCIFEROL
     Indication: Prophylaxis
  5. VITAMIN C [Concomitant]
     Active Substance: ASCORBIC ACID
     Indication: Immune disorder prophylaxis
     Dosage: 100MG DAILY
     Route: 065
  6. VITAMINS [Concomitant]
     Active Substance: VITAMINS
     Indication: Hypovitaminosis
     Dosage: DAILY
     Route: 065
  7. PREDNISONE [Concomitant]
     Active Substance: PREDNISONE
     Indication: Duchenne muscular dystrophy
     Dosage: 50MG ON SATURDAY AND SUNDAY
     Route: 065

REACTIONS (1)
  - Urticaria [Unknown]

NARRATIVE: CASE EVENT DATE: 20251021
